FAERS Safety Report 23724245 (Version 5)
Quarter: 2025Q1

REPORT INFORMATION
  Report Type: Spontaneous
  Country: US (occurrence: US)
  Receive Date: 20240409
  Receipt Date: 20250211
  Transmission Date: 20250408
  Serious: No
  Sender: KARYOPHARM THERAPEUTICS
  Company Number: US-KARYOPHARM-2024KPT000879

PATIENT

DRUGS (20)
  1. XPOVIO [Suspect]
     Active Substance: SELINEXOR
     Indication: Plasma cell myeloma
     Dosage: 80 MG, 2X/WEEK ON MONDAYS AND WEDNESDAYS
     Route: 048
     Dates: start: 20230324
  2. ACYCLOVIR [Concomitant]
     Active Substance: ACYCLOVIR
  3. ALBUTEROL SULFATE [Concomitant]
     Active Substance: ALBUTEROL SULFATE
  4. CARAFATE [Concomitant]
     Active Substance: SUCRALFATE
  5. CLOBETASOL PROPIONATE [Concomitant]
     Active Substance: CLOBETASOL PROPIONATE
  6. DEXAMETHASONE [Concomitant]
     Active Substance: DEXAMETHASONE
  7. FLUCONAZOLE [Concomitant]
     Active Substance: FLUCONAZOLE
  8. LEVAQUIN [Concomitant]
     Active Substance: LEVOFLOXACIN
  9. LORAZEPAM [Concomitant]
     Active Substance: LORAZEPAM
  10. MEDROXYPROGESTERONE [Concomitant]
     Active Substance: MEDROXYPROGESTERONE
  11. MEGACE ES [Concomitant]
     Active Substance: MEGESTROL ACETATE
  12. MONTELUKAST SODIUM [Concomitant]
     Active Substance: MONTELUKAST SODIUM
  13. NEXIUM I.V. [Concomitant]
     Active Substance: ESOMEPRAZOLE SODIUM
  14. NYSTATIN [Concomitant]
     Active Substance: NYSTATIN
  15. ORILISSA [Concomitant]
     Active Substance: ELAGOLIX SODIUM
  16. OXYCODONE [Concomitant]
     Active Substance: OXYCODONE
  17. PROCHLORPERAZINE [Concomitant]
     Active Substance: PROCHLORPERAZINE
  18. SUSTIVA [Concomitant]
     Active Substance: EFAVIRENZ
  19. ZIAGEN [Concomitant]
     Active Substance: ABACAVIR SULFATE
  20. ZOLPIDEM [Concomitant]
     Active Substance: ZOLPIDEM TARTRATE

REACTIONS (4)
  - Muscle spasms [Not Recovered/Not Resolved]
  - Pancytopenia [Unknown]
  - Nausea [Not Recovered/Not Resolved]
  - Drug ineffective [Unknown]

NARRATIVE: CASE EVENT DATE: 20240601
